FAERS Safety Report 5065259-9 (Version None)
Quarter: 2006Q3

REPORT INFORMATION
  Report Type: 
  Country: None (occurrence: None)
  Receive Date: 20060707
  Receipt Date: 20050531
  Transmission Date: 20061208
  Serious: Yes (Other)
  Sender: FDA-Public Use
  Company Number: SUS1-2005-00439

PATIENT
  Age: 59 Year
  Sex: Female
  Weight: 62.6 kg

DRUGS (2)
  1. PENTASA [Suspect]
     Indication: COLITIS ULCERATIVE
     Dosage: 500 MG, 4X/DAY; QID
     Dates: start: 20050203, end: 20050206
  2. DONNATAL (ATROPINE SULFATE, PHENOBARBITAL, HYOSCINE HYDROBROMIDE, HYOS [Concomitant]

REACTIONS (1)
  - OEDEMA PERIPHERAL [None]
